FAERS Safety Report 24929334 (Version 2)
Quarter: 2025Q1

REPORT INFORMATION
  Report Type: Spontaneous
  Country: US (occurrence: US)
  Receive Date: 20250205
  Receipt Date: 20250214
  Transmission Date: 20250409
  Serious: Yes (Disabling, Other)
  Sender: REGENERON
  Company Number: US-REGENERON PHARMACEUTICALS, INC.-2025-024657

PATIENT
  Sex: Male

DRUGS (1)
  1. EYLEA HD [Suspect]
     Active Substance: AFLIBERCEPT
     Indication: Product used for unknown indication

REACTIONS (4)
  - Blindness [Not Recovered/Not Resolved]
  - Endophthalmitis [Unknown]
  - Retinal haemorrhage [Unknown]
  - Capillary disorder [Unknown]

NARRATIVE: CASE EVENT DATE: 20250101
